FAERS Safety Report 4371612-9 (Version None)
Quarter: 2004Q2

REPORT INFORMATION
  Report Type: 
  Country: None (occurrence: None)
  Receive Date: 20040601
  Receipt Date: 20040518
  Transmission Date: 20050107
  Serious: Yes (Other)
  Sender: FDA-Public Use
  Company Number: 2004034381

PATIENT
  Age: 54 Year
  Sex: Female

DRUGS (4)
  1. LIPITOR [Suspect]
     Indication: ILL-DEFINED DISORDER
  2. DIFLUCAN [Suspect]
     Indication: ILL-DEFINED DISORDER
  3. ZYRTEC [Suspect]
     Indication: ILL-DEFINED DISORDER
  4. GLUCOTROL XL [Suspect]
     Indication: ILL-DEFINED DISORDER

REACTIONS (6)
  - BALANCE DISORDER [None]
  - EXTREMITY NECROSIS [None]
  - PAIN [None]
  - PARAESTHESIA [None]
  - SENSORY LOSS [None]
  - SKIN ULCER [None]
